FAERS Safety Report 21345637 (Version 1)
Quarter: 2022Q3

REPORT INFORMATION
  Report Type: Spontaneous
  Country: US (occurrence: US)
  Receive Date: 20220916
  Receipt Date: 20220916
  Transmission Date: 20221027
  Serious: Yes (Other)
  Sender: FDA-Public Use
  Company Number: US-009507513-2209USA005217

PATIENT
  Sex: Male

DRUGS (3)
  1. KEYTRUDA [Suspect]
     Active Substance: PEMBROLIZUMAB
     Indication: Microsatellite instability cancer
     Dosage: UNK
  2. NIVOLUMAB [Concomitant]
     Active Substance: NIVOLUMAB
     Indication: Microsatellite instability cancer
     Dosage: UNK
  3. IPILIMUMAB [Concomitant]
     Active Substance: IPILIMUMAB
     Indication: Microsatellite instability cancer
     Dosage: UNK

REACTIONS (1)
  - Myelitis transverse [Unknown]
